FAERS Safety Report 21500167 (Version 1)
Quarter: 2022Q4

REPORT INFORMATION
  Report Type: Spontaneous
  Country: US (occurrence: US)
  Receive Date: 20221024
  Receipt Date: 20221024
  Transmission Date: 20230112
  Serious: No
  Sender: FDA-Public Use
  Company Number: US-009507513-2210USA004641

PATIENT
  Age: 63 Year
  Sex: Male

DRUGS (6)
  1. CANCIDAS [Suspect]
     Active Substance: CASPOFUNGIN ACETATE
     Indication: Aspergillus infection
  2. REMDESIVIR [Concomitant]
     Active Substance: REMDESIVIR
     Indication: COVID-19
  3. DECADRON [Concomitant]
     Active Substance: DEXAMETHASONE
     Indication: COVID-19
  4. TOCILIZUMAB [Concomitant]
     Active Substance: TOCILIZUMAB
     Indication: COVID-19
     Dosage: SECOND DOSE
  5. VANCOMYCIN [Concomitant]
     Active Substance: VANCOMYCIN
     Indication: Aspergillus infection
  6. VORICONAZOLE [Concomitant]
     Active Substance: VORICONAZOLE
     Indication: Aspergillus infection

REACTIONS (1)
  - Product use in unapproved indication [Unknown]
